FAERS Safety Report 7971040-0 (Version None)
Quarter: 2011Q4

REPORT INFORMATION
  Report Type: 
  Country: None (occurrence: None)
  Receive Date: 20111212
  Receipt Date: 20111212
  Transmission Date: 20120403
  Serious: Yes (Other)
  Sender: FDA-Public Use
  Company Number: None

PATIENT
  Age: 60 Year
  Sex: Male
  Weight: 92 kg

DRUGS (11)
  1. PIPERACILLIN AND TAZOBACTAM [Concomitant]
  2. MORPHINE [Concomitant]
     Route: 042
  3. PANTOPRAZOLE [Concomitant]
     Route: 048
  4. SILVADENE [Concomitant]
     Route: 061
  5. LIDOCAINE TOPICAL PATCH [Concomitant]
     Route: 061
  6. ALBUMIN (HUMAN) [Concomitant]
     Route: 042
  7. FUROSEMIDE [Concomitant]
     Route: 042
  8. ENOXAPARIN [Concomitant]
     Route: 058
  9. MS CONTIN [Concomitant]
  10. VANCOMYCIN [Suspect]
     Indication: PNEUMONIA
     Dosage: 1.5 GRAMS
     Route: 042
     Dates: start: 20110918, end: 20110921
  11. MIRALAX [Concomitant]
     Route: 048

REACTIONS (2)
  - CHEST PAIN [None]
  - RENAL FAILURE ACUTE [None]
